FAERS Safety Report 11500118 (Version 1)
Quarter: 2015Q3

REPORT INFORMATION
  Report Type: Report from Study
  Country: US (occurrence: US)
  Receive Date: 20150914
  Receipt Date: 20150914
  Transmission Date: 20151125
  Serious: Yes (Hospitalization)
  Sender: FDA-Public Use
  Company Number: US-BAYER-2015-400097

PATIENT
  Age: 50 Year
  Sex: Male

DRUGS (10)
  1. REGORAFENIB [Suspect]
     Active Substance: REGORAFENIB
     Indication: OSTEOSARCOMA
     Dosage: 2 TABLETS PER DAY (DAILY DOSE 80 MG) ( (CROSS-OVER)
     Route: 048
     Dates: start: 20150314, end: 20150810
  2. LISINOPRIL. [Concomitant]
     Active Substance: LISINOPRIL
     Dosage: 10 MG, QD
     Route: 048
  3. SENNA-S [DOCUSATE SODIUM,SENNA ALEXANDRINA] [Concomitant]
     Dosage: 1 TABLET, BID
     Route: 048
  4. SODIUM PHOSPHATE [SODIUM PHOSPHATE] [Concomitant]
     Dosage: 250 MG, BID
     Route: 048
  5. POTASSIUM CHLORIDE. [Concomitant]
     Active Substance: POTASSIUM CHLORIDE
     Dosage: 40 MEQ, QD
     Route: 048
  6. LORAZEPAM. [Concomitant]
     Active Substance: LORAZEPAM
     Indication: ANXIETY
     Dosage: 1 TABLET EVERY SIX HOURS AS NEEDED
     Route: 048
  7. MAG-OX [Concomitant]
     Active Substance: MAGNESIUM OXIDE
     Indication: HYPOMAGNESAEMIA
     Dosage: 400 MG, QD
     Route: 048
  8. MORPHINE [Concomitant]
     Active Substance: MORPHINE
     Indication: PAIN
     Dosage: 1 TABLET EVERY 4 HOURS AS NEEDED
     Route: 048
  9. POTASSIUM PHOSPHATES [Concomitant]
     Active Substance: POTASSIUM PHOSPHATE, DIBASIC\POTASSIUM PHOSPHATE, MONOBASIC
     Dosage: 250 MG, BID
     Route: 048
  10. LEVOFLOXACIN. [Concomitant]
     Active Substance: LEVOFLOXACIN
     Dosage: 500 MG, QD
     Route: 048

REACTIONS (2)
  - Decubitus ulcer [None]
  - Infected skin ulcer [Recovering/Resolving]

NARRATIVE: CASE EVENT DATE: 201506
